FAERS Safety Report 20048189 (Version 2)
Quarter: 2021Q4

REPORT INFORMATION
  Report Type: Spontaneous
  Country: HU (occurrence: None)
  Receive Date: 20211109
  Receipt Date: 20211217
  Transmission Date: 20220303
  Serious: Yes (Other)
  Sender: FDA-Public Use
  Company Number: HU-ROCHE-2950597

PATIENT
  Age: 66 Year
  Sex: Female

DRUGS (1)
  1. AVASTIN [Suspect]
     Active Substance: BEVACIZUMAB
     Indication: Non-small cell lung cancer
     Dosage: 100MG 4ML 4
     Route: 065

REACTIONS (3)
  - Glomerular filtration rate decreased [Unknown]
  - Diabetes mellitus [Unknown]
  - Blood creatinine increased [Unknown]
